FAERS Safety Report 16696002 (Version 2)
Quarter: 2019Q3

REPORT INFORMATION
  Report Type: Spontaneous
  Country: US (occurrence: US)
  Receive Date: 20190813
  Receipt Date: 20190815
  Transmission Date: 20191004
  Serious: No
  Sender: FDA-Public Use
  Company Number: US-B.I. PHARMACEUTICALS,INC./RIDGEFIELD-2019-US-001298

PATIENT
  Age: 58 Year
  Sex: Female

DRUGS (2)
  1. CLINDAMYCIN. [Suspect]
     Active Substance: CLINDAMYCIN
     Indication: TOOTH ABSCESS
     Route: 065
  2. TRADJENTA [Suspect]
     Active Substance: LINAGLIPTIN
     Indication: TYPE 2 DIABETES MELLITUS
     Dosage: ONCE DAILY
     Route: 065
     Dates: start: 201907, end: 201907

REACTIONS (2)
  - Dyspepsia [Recovered/Resolved]
  - Tooth abscess [Recovered/Resolved]

NARRATIVE: CASE EVENT DATE: 201907
